FAERS Safety Report 21416506 (Version 1)
Quarter: 2022Q4

REPORT INFORMATION
  Report Type: Spontaneous
  Country: FR (occurrence: FR)
  Receive Date: 20221006
  Receipt Date: 20221006
  Transmission Date: 20230113
  Serious: Yes (Hospitalization, Other)
  Sender: FDA-Public Use
  Company Number: None

PATIENT
  Age: 45 Year
  Sex: Male

DRUGS (3)
  1. DIAZEPAM [Suspect]
     Active Substance: DIAZEPAM
     Indication: Product used for unknown indication
     Dosage: 40 MILLIGRAM DAILY; THERAPY START DATE AND END DATE: NASK
     Route: 065
  2. COCAINE [Concomitant]
     Active Substance: COCAINE
     Indication: Product used for unknown indication
     Dosage: UNSPECIFIED
     Dates: start: 1989
  3. COCAINE [Concomitant]
     Active Substance: COCAINE
     Dosage: 0.5G
     Dates: start: 1989

REACTIONS (3)
  - Drug detoxification [Recovering/Resolving]
  - Drug abuse [Not Recovered/Not Resolved]
  - Intentional product misuse [Recovering/Resolving]

NARRATIVE: CASE EVENT DATE: 20210401
